FAERS Safety Report 11279821 (Version 5)
Quarter: 2016Q1

REPORT INFORMATION
  Report Type: Report from Study
  Country: JP (occurrence: JP)
  Receive Date: 20150717
  Receipt Date: 20160204
  Transmission Date: 20160525
  Serious: Yes (Death, Life-Threatening)
  Sender: FDA-Public Use
  Company Number: JP-EISAI MEDICAL RESEARCH-EC-2015-008612

PATIENT
  Age: 53 Year
  Sex: Male
  Weight: 55 kg

DRUGS (6)
  1. LENVIMA [Suspect]
     Active Substance: LENVATINIB
     Indication: PAPILLARY THYROID CANCER
     Route: 048
     Dates: start: 20150601, end: 20150626
  2. PYDOXAL [Concomitant]
     Active Substance: PYRIDOXAL
  3. LEVOTHYROXINE. [Concomitant]
     Active Substance: LEVOTHYROXINE
  4. RINDERON V [Concomitant]
     Active Substance: BETAMETHASONE VALERATE
  5. PASTARON [Concomitant]
     Active Substance: UREA
  6. ADALAT CC [Concomitant]
     Active Substance: NIFEDIPINE

REACTIONS (3)
  - Fistula [Not Recovered/Not Resolved]
  - Necrosis [Unknown]
  - Arterial haemorrhage [Fatal]

NARRATIVE: CASE EVENT DATE: 20150615
